FAERS Safety Report 6722845-5 (Version None)
Quarter: 2010Q2

REPORT INFORMATION
  Report Type: 
  Country: None (occurrence: None)
  Receive Date: 20100512
  Receipt Date: 20100512
  Transmission Date: 20101027
  Serious: Yes (Other)
  Sender: FDA-Public Use
  Company Number: None

PATIENT
  Age: 38 Year
  Sex: Female
  Weight: 74.8435 kg

DRUGS (1)
  1. CIPRO [Suspect]
     Indication: INFECTION
     Dosage: 5
     Dates: start: 20090420, end: 20090425

REACTIONS (1)
  - DRUG HYPERSENSITIVITY [None]
